FAERS Safety Report 5832052-6 (Version None)
Quarter: 2008Q3

REPORT INFORMATION
  Report Type: 
  Country: None (occurrence: None)
  Receive Date: 20080804
  Receipt Date: 20080718
  Transmission Date: 20090109
  Serious: Yes (Other)
  Sender: FDA-Public Use
  Company Number: FR-BAYER-200822794GPV

PATIENT
  Age: 38 Year
  Sex: Female

DRUGS (6)
  1. BETAFERON [Suspect]
     Indication: MULTIPLE SCLEROSIS
     Route: 057
     Dates: start: 20040923, end: 20080716
  2. DAFLON [Concomitant]
     Indication: HAEMORRHOIDS
     Route: 048
     Dates: end: 20070615
  3. TITANOREINE [Concomitant]
     Indication: HAEMORRHOIDS
     Dates: end: 20080615
  4. ZOLMITRIPTAN [Concomitant]
     Indication: HEADACHE
     Route: 048
  5. LEVONORGESTREL AND ETHINYL ESTRADIOL [Concomitant]
     Indication: CONTRACEPTION
     Dates: end: 20070615
  6. PARACETAMOL [Concomitant]
     Indication: HEADACHE
     Route: 048

REACTIONS (1)
  - PORPHYRIA NON-ACUTE [None]
